FAERS Safety Report 24717707 (Version 1)
Quarter: 2024Q4

REPORT INFORMATION
  Report Type: Spontaneous
  Country: US (occurrence: US)
  Receive Date: 20241210
  Receipt Date: 20241210
  Transmission Date: 20250114
  Serious: Yes (Hospitalization, Other)
  Sender: ALEMBIC
  Company Number: US-ALEMBIC PHARMACUETICALS LIMITED-2024SCAL001792

PATIENT

DRUGS (7)
  1. LEVETIRACETAM [Suspect]
     Active Substance: LEVETIRACETAM
     Indication: Partial seizures
     Dosage: UNK
     Route: 065
  2. TEMOZOLOMIDE [Suspect]
     Active Substance: TEMOZOLOMIDE
     Indication: Glioblastoma
     Dosage: UNK UNK, QD
     Route: 065
  3. LACOSAMIDE [Concomitant]
     Active Substance: LACOSAMIDE
     Indication: Partial seizures
     Dosage: UNK
     Route: 065
  4. DEXAMETHASONE [Concomitant]
     Active Substance: DEXAMETHASONE
     Indication: Product used for unknown indication
     Dosage: UNK
     Route: 065
  5. PANTOPRAZOLE [Concomitant]
     Active Substance: PANTOPRAZOLE
     Indication: Product used for unknown indication
     Dosage: UNK
     Route: 065
  6. CLONAZEPAM [Concomitant]
     Active Substance: CLONAZEPAM
     Indication: Partial seizures
     Dosage: UNK
     Route: 065
  7. ACETAMINOPHEN [Concomitant]
     Active Substance: ACETAMINOPHEN
     Indication: Headache
     Dosage: UNK
     Route: 065

REACTIONS (17)
  - Vanishing bile duct syndrome [Unknown]
  - Drug-induced liver injury [Unknown]
  - Hyperbilirubinaemia [Not Recovered/Not Resolved]
  - Hepatic enzyme increased [Not Recovered/Not Resolved]
  - Chromaturia [Unknown]
  - Faeces pale [Unknown]
  - Yellow skin [Unknown]
  - Jaundice [Unknown]
  - Hepatomegaly [Unknown]
  - Hypertransaminasaemia [Unknown]
  - Blood alkaline phosphatase increased [Unknown]
  - Lipase increased [Unknown]
  - Ammonia increased [Unknown]
  - Aspartate aminotransferase increased [Unknown]
  - Blood alkaline phosphatase increased [Unknown]
  - Haemoglobin decreased [Unknown]
  - Hepatic function abnormal [Unknown]
